FAERS Safety Report 9843424 (Version 2)
Quarter: 2014Q2

REPORT INFORMATION
  Report Type: Spontaneous
  Country: US (occurrence: None)
  Receive Date: 20131127
  Receipt Date: 20131127
  Transmission Date: 20141212
  Serious: No
  Sender: FDA-Public Use
  Company Number: 220249LEO

PATIENT
  Age: 66 Year
  Sex: Female

DRUGS (2)
  1. PICATO [Suspect]
     Indication: PHOTOSENSITIVITY REACTION
     Dosage: 1 IN 1 D TOPICAL
     Route: 061
     Dates: start: 20130119, end: 20130121
  2. ORACEA (DOXYCYCLINE) [Concomitant]

REACTIONS (6)
  - Application site dryness [None]
  - Application site swelling [None]
  - Application site erythema [None]
  - Application site exfoliation [None]
  - Drug administered at inappropriate site [None]
  - Off label use [None]
